FAERS Safety Report 6922463-X (Version None)
Quarter: 2010Q3

REPORT INFORMATION
  Report Type: 
  Country: None (occurrence: None)
  Receive Date: 20100813
  Receipt Date: 20100806
  Transmission Date: 20110219
  Serious: Yes (Hospitalization, Other)
  Sender: FDA-Public Use
  Company Number: US-JNJFOC-20100705541

PATIENT
  Sex: Male

DRUGS (3)
  1. LEVAQUIN [Suspect]
     Indication: PROPHYLAXIS
     Route: 048
  2. LEVAQUIN [Suspect]
     Indication: INJURY
     Route: 048
  3. CIPRO [Suspect]
     Indication: URETHRITIS
     Route: 065

REACTIONS (3)
  - ARTHROPATHY [None]
  - ROTATOR CUFF SYNDROME [None]
  - TENDON RUPTURE [None]
